FAERS Safety Report 6935383-1 (Version None)
Quarter: 2010Q3

REPORT INFORMATION
  Report Type: 
  Country: None (occurrence: None)
  Receive Date: 20100823
  Receipt Date: 20100813
  Transmission Date: 20110219
  Serious: Yes (Hospitalization, Other)
  Sender: FDA-Public Use
  Company Number: US-BIOGENIDEC-2010BI014405

PATIENT
  Age: 65 Year
  Sex: Female

DRUGS (2)
  1. AVONEX [Suspect]
     Indication: MULTIPLE SCLEROSIS
     Route: 030
     Dates: start: 20021218
  2. AVONEX [Suspect]
     Route: 030
     Dates: start: 20100121

REACTIONS (5)
  - ARTHRALGIA [None]
  - CONVULSION [None]
  - FALL [None]
  - HIP FRACTURE [None]
  - TRANSFUSION [None]
